FAERS Safety Report 20831795 (Version 2)
Quarter: 2022Q2

REPORT INFORMATION
  Report Type: Report from Study
  Country: US (occurrence: US)
  Receive Date: 20220516
  Receipt Date: 20220516
  Transmission Date: 20220721
  Serious: Yes (Death, Hospitalization)
  Sender: FDA-Public Use
  Company Number: US-BoehringerIngelheim-2020-BI-010009

PATIENT
  Sex: Male

DRUGS (1)
  1. OFEV [Suspect]
     Active Substance: NINTEDANIB
     Indication: Idiopathic pulmonary fibrosis
     Route: 048
     Dates: start: 20191204

REACTIONS (8)
  - Pneumonia [Fatal]
  - Malaise [Unknown]
  - Diverticulitis intestinal haemorrhagic [Unknown]
  - Nasopharyngitis [Unknown]
  - Pneumonia [Unknown]
  - Nasal congestion [Unknown]
  - Cough [Unknown]
  - Constipation [Not Recovered/Not Resolved]
